FAERS Safety Report 12913990 (Version 1)
Quarter: 2016Q4

REPORT INFORMATION
  Report Type: Spontaneous
  Country: US (occurrence: US)
  Receive Date: 20161104
  Receipt Date: 20161104
  Transmission Date: 20170207
  Serious: Yes (Other)
  Sender: FDA-Public Use
  Company Number: US-DISCUS DENTAL, LLC-1059269

PATIENT
  Sex: Female

DRUGS (1)
  1. FLUORIDEX DAILY DEFENSE SENSITIVITY RELIEF [Suspect]
     Active Substance: POTASSIUM NITRATE\SODIUM FLUORIDE
     Route: 048
     Dates: start: 201610

REACTIONS (4)
  - Increased upper airway secretion [None]
  - Mucosal discolouration [None]
  - Pharyngeal disorder [None]
  - Oropharyngeal pain [Unknown]

NARRATIVE: CASE EVENT DATE: 201610
